FAERS Safety Report 4807091-4 (Version None)
Quarter: 2005Q4

REPORT INFORMATION
  Report Type: 
  Country: None (occurrence: None)
  Receive Date: 20051024
  Receipt Date: 20051019
  Transmission Date: 20060501
  Serious: Yes (Hospitalization)
  Sender: FDA-Public Use
  Company Number: US-GLAXOSMITHKLINE-A0578758A

PATIENT
  Age: 43 Year
  Sex: Female

DRUGS (2)
  1. BUPROPION HYDROCHLORIDE [Suspect]
     Indication: FATIGUE
     Route: 048
     Dates: start: 20051012
  2. FIORINAL [Concomitant]

REACTIONS (3)
  - BACK PAIN [None]
  - COELIAC DISEASE [None]
  - MUSCLE TIGHTNESS [None]
